FAERS Safety Report 19597958 (Version 1)
Quarter: 2021Q3

REPORT INFORMATION
  Report Type: Spontaneous
  Country: US (occurrence: US)
  Receive Date: 20210722
  Receipt Date: 20210722
  Transmission Date: 20211014
  Serious: No
  Sender: FDA-Public Use
  Company Number: US-MILLICENT HOLDINGS LTD.-MILL20210697

PATIENT
  Age: 64 Year
  Sex: Female

DRUGS (1)
  1. FEMRING [Suspect]
     Active Substance: ESTRADIOL ACETATE
     Indication: PRODUCT USED FOR UNKNOWN INDICATION
     Dosage: 0.05 MG / DAY
     Route: 067
     Dates: start: 20210701

REACTIONS (2)
  - Product dose omission issue [None]
  - Device expulsion [None]

NARRATIVE: CASE EVENT DATE: 20210719
